FAERS Safety Report 7866877-2 (Version None)
Quarter: 2011Q4

REPORT INFORMATION
  Report Type: 
  Country: None (occurrence: None)
  Receive Date: 20111028
  Receipt Date: 20111020
  Transmission Date: 20120403
  Serious: Yes (Hospitalization, Other)
  Sender: FDA-Public Use
  Company Number: DK-PFIZER INC-2011254675

PATIENT
  Sex: Female

DRUGS (1)
  1. VARENICLINE TARTRATE [Suspect]
     Indication: SMOKING CESSATION THERAPY

REACTIONS (7)
  - PHARYNGEAL OEDEMA [None]
  - RASH GENERALISED [None]
  - ASTHMA [None]
  - BRONCHITIS [None]
  - DYSKINESIA [None]
  - OEDEMA PERIPHERAL [None]
  - GINGIVAL DISORDER [None]
